FAERS Safety Report 7526809-3 (Version None)
Quarter: 2011Q2

REPORT INFORMATION
  Report Type: 
  Country: None (occurrence: None)
  Receive Date: 20110606
  Receipt Date: 20110525
  Transmission Date: 20111010
  Serious: Yes (Other)
  Sender: FDA-Public Use
  Company Number: DE-BAYER-2011-044697

PATIENT
  Age: 27 Year
  Sex: Female
  Weight: 64 kg

DRUGS (1)
  1. MAGNOGRAF [Suspect]
     Indication: NUCLEAR MAGNETIC RESONANCE IMAGING
     Dosage: 15 ML, ONCE
     Route: 042
     Dates: start: 20110517, end: 20110517

REACTIONS (4)
  - DYSPNOEA [None]
  - MUSCULOSKELETAL DISCOMFORT [None]
  - DYSPHONIA [None]
  - LARYNGEAL OEDEMA [None]
